FAERS Safety Report 12661573 (Version 3)
Quarter: 2017Q1

REPORT INFORMATION
  Report Type: Spontaneous
  Country: US (occurrence: US)
  Receive Date: 20160817
  Receipt Date: 20170103
  Transmission Date: 20170428
  Serious: No
  Sender: FDA-Public Use
  Company Number: US-PFIZER INC-2016385339

PATIENT
  Age: 44 Year
  Sex: Female

DRUGS (5)
  1. RELPAX [Suspect]
     Active Substance: ELETRIPTAN HYDROBROMIDE
     Dosage: 40 MG, UNK, (1 TO 2X^S PERDAY), (2-4X^S PER MONTH)
     Route: 048
     Dates: start: 201608, end: 20161212
  2. RITALIN LA [Concomitant]
     Active Substance: METHYLPHENIDATE HYDROCHLORIDE
     Indication: ATTENTION DEFICIT/HYPERACTIVITY DISORDER
     Dosage: 20 MG, UNK
     Dates: start: 20160706
  3. RELPAX [Suspect]
     Active Substance: ELETRIPTAN HYDROBROMIDE
     Indication: MIGRAINE
     Dosage: 40 MG, AS NEEDED (1 ONSET OF HEADACHE; MAY REPEAT IN 2 HRS.; MAX DOSE 2 IN 24 HRS)
     Route: 048
  4. RELPAX [Suspect]
     Active Substance: ELETRIPTAN HYDROBROMIDE
     Dosage: 40 MG, AS NEEDED (DAILY)
     Route: 048
     Dates: start: 20160429
  5. TOPAMAX [Concomitant]
     Active Substance: TOPIRAMATE
     Indication: MIGRAINE
     Dosage: 50 MG, DAILY
     Dates: start: 20081118

REACTIONS (2)
  - Somnolence [Recovered/Resolved]
  - Drug effect incomplete [Not Recovered/Not Resolved]
